FAERS Safety Report 10401595 (Version 2)
Quarter: 2014Q4

REPORT INFORMATION
  Report Type: Report from Study
  Country: KR (occurrence: KR)
  Receive Date: 20140822
  Receipt Date: 20141017
  Transmission Date: 20150528
  Serious: No
  Sender: FDA-Public Use
  Company Number: PHHY2014KR104546

PATIENT
  Age: 73 Year
  Sex: Male

DRUGS (11)
  1. BACTROBAN [Concomitant]
     Active Substance: MUPIROCIN\MUPIROCIN CALCIUM
     Indication: SKIN PLAQUE
     Dosage: 10 G, UNK
     Route: 061
     Dates: start: 20120910, end: 20120910
  2. EPINEPHRINE. [Concomitant]
     Active Substance: EPINEPHRINE
     Indication: SKIN PLAQUE
     Dosage: 1 MG, UNK
     Route: 058
     Dates: start: 20120817, end: 20120827
  3. AMN107 [Suspect]
     Active Substance: NILOTINIB
     Indication: CHRONIC MYELOID LEUKAEMIA
     Dosage: 400 MG, PER DAY
     Route: 048
     Dates: start: 20120614
  4. ULTRACET [Concomitant]
     Active Substance: ACETAMINOPHEN\TRAMADOL HYDROCHLORIDE
     Indication: SKIN PLAQUE
  5. ULTRACET [Concomitant]
     Active Substance: ACETAMINOPHEN\TRAMADOL HYDROCHLORIDE
     Indication: PRURITUS
  6. LEVOTHYROXINE SODIUM. [Concomitant]
     Active Substance: LEVOTHYROXINE SODIUM
  7. TYLENOL [Concomitant]
     Active Substance: ACETAMINOPHEN
     Indication: PRURITUS
  8. BACTROBAN [Concomitant]
     Active Substance: MUPIROCIN\MUPIROCIN CALCIUM
     Indication: PRURITUS
  9. TYLENOL [Concomitant]
     Active Substance: ACETAMINOPHEN
     Indication: SKIN PLAQUE
     Dosage: 1300 MG, UNK
     Route: 048
     Dates: start: 20120827, end: 20120831
  10. ULTRACET [Concomitant]
     Active Substance: ACETAMINOPHEN\TRAMADOL HYDROCHLORIDE
     Indication: MYALGIA
     Dosage: 2 T, UNK
     Route: 048
     Dates: start: 20120827, end: 20120910
  11. EPINEPHRINE. [Concomitant]
     Active Substance: EPINEPHRINE
     Indication: PRURITUS

REACTIONS (2)
  - Pruritus [Recovered/Resolved]
  - Skin plaque [Recovered/Resolved]

NARRATIVE: CASE EVENT DATE: 20120817
